FAERS Safety Report 25948335 (Version 2)
Quarter: 2025Q4

REPORT INFORMATION
  Report Type: Spontaneous
  Country: US (occurrence: US)
  Receive Date: 20251022
  Receipt Date: 20251104
  Transmission Date: 20260118
  Serious: Yes (Other)
  Sender: ADARE PHARMACEUTICALS
  Company Number: US-ADAREPHARM-2025-US-000085

PATIENT
  Sex: Female

DRUGS (5)
  1. DEXMETHYLPHENIDATE HYDROCHLORIDE [Suspect]
     Active Substance: DEXMETHYLPHENIDATE HYDROCHLORIDE
  2. VENLAFAXINE [Concomitant]
     Active Substance: VENLAFAXINE HYDROCHLORIDE
  3. ESCITALOPRAM [Concomitant]
     Active Substance: ESCITALOPRAM OXALATE
  4. LISDEXAMFETAMINE [Concomitant]
     Active Substance: LISDEXAMFETAMINE
  5. VILAZODONE [Concomitant]
     Active Substance: VILAZODONE

REACTIONS (5)
  - Respiratory distress [Unknown]
  - Hyperthermia [Unknown]
  - Pruritus [Unknown]
  - Bruxism [Unknown]
  - Hyperhidrosis [Unknown]

NARRATIVE: CASE EVENT DATE: 20250901
